FAERS Safety Report 7029255-4 (Version None)
Quarter: 2010Q4

REPORT INFORMATION
  Report Type: 
  Country: None (occurrence: None)
  Receive Date: 20101005
  Receipt Date: 20100922
  Transmission Date: 20110411
  Serious: Yes (Hospitalization)
  Sender: FDA-Public Use
  Company Number: MX-ELI_LILLY_AND_COMPANY-MX201009002224

PATIENT
  Sex: Female

DRUGS (1)
  1. FORTEO [Suspect]
     Indication: SPINAL DISORDER
     Dosage: UNK UNK, UNKNOWN

REACTIONS (3)
  - INFECTION [None]
  - OFF LABEL USE [None]
  - SPINAL OSTEOARTHRITIS [None]
